FAERS Safety Report 4777281-8 (Version None)
Quarter: 2005Q3

REPORT INFORMATION
  Report Type: 
  Country: None (occurrence: None)
  Receive Date: 20050915
  Receipt Date: 20050906
  Transmission Date: 20060218
  Serious: Yes (Other)
  Sender: FDA-Public Use
  Company Number: HQWYE256806SEP05

PATIENT
  Age: 58 Year
  Sex: Female

DRUGS (14)
  1. RAPAMUNE [Suspect]
     Indication: PROPHYLAXIS AGAINST TRANSPLANT REJECTION
     Dosage: 2 MG 1X PER 1 DAY ORAL
     Route: 048
     Dates: start: 20050325, end: 20050824
  2. PREDNISONE [Suspect]
     Indication: PROPHYLAXIS AGAINST TRANSPLANT REJECTION
     Dosage: 5 MG 1X PER 1 DAY ORAL
     Route: 048
     Dates: start: 20041231, end: 20050815
  3. NEORAL [Suspect]
     Indication: PROPHYLAXIS AGAINST TRANSPLANT REJECTION
     Dosage: 100 MG 2X PER 1 DAY ORAL
     Route: 048
     Dates: start: 20041231, end: 20050815
  4. MYCOPHENOLATE MOFETIL (MYCOPHENOLATE MOFETIL) [Concomitant]
  5. ZENAPAX [Concomitant]
  6. MYOLASTAN (TETRAZEPAM) [Concomitant]
  7. OMEPRAZOLE [Concomitant]
  8. APROVEL (IRBESARTAN) [Concomitant]
  9. OROCAL (CALCIUM CARBONATE) [Concomitant]
  10. NEORECORMON (EPOETIN BETA) [Concomitant]
  11. VENOFER (FERRIC HYDROXIDE) [Concomitant]
  12. FLUVASTATIN (FLUVASTATIN) [Concomitant]
  13. ACETAMINOPHEN W/ PROPOXYPHENE HCL [Concomitant]
  14. AVLOCARDYL (PROPANOLOL HYDROCHLORIDE) [Concomitant]

REACTIONS (2)
  - CHOLESTASIS [None]
  - CONDITION AGGRAVATED [None]
